FAERS Safety Report 7280920-3 (Version None)
Quarter: 2011Q1

REPORT INFORMATION
  Report Type: 
  Country: None (occurrence: None)
  Receive Date: 20110208
  Receipt Date: 20110201
  Transmission Date: 20110831
  Serious: Yes (Death, Hospitalization)
  Sender: FDA-Public Use
  Company Number: US-ELI_LILLY_AND_COMPANY-US201008007055

PATIENT
  Sex: Female
  Weight: 54 kg

DRUGS (18)
  1. OMEPRAZOLE [Concomitant]
     Dosage: 20 MG, UNK
     Dates: start: 20100823
  2. PROCHLORPERAZINE [Concomitant]
     Dosage: 10 MG, UNK
  3. DEXAMETHASONE [Concomitant]
     Dosage: 4 MG/KG, UNK
     Route: 048
     Dates: start: 20100812
  4. AMLODIPINE [Concomitant]
     Dosage: 5 MG, UNK
     Dates: start: 20100823
  5. VITAMIN D [Concomitant]
     Dates: start: 20100823
  6. EVISTA [Concomitant]
  7. GABAPENTIN [Concomitant]
  8. ATIVAN [Concomitant]
  9. ACETAMINOPHEN [Concomitant]
  10. CETUXIMAB [Suspect]
     Indication: NON-SMALL CELL LUNG CANCER
     Dosage: 380 MG, OTHER
     Route: 042
     Dates: start: 20100722, end: 20100813
  11. OXYCODONE HCL [Concomitant]
  12. M.V.I. [Concomitant]
     Dates: start: 20100823
  13. ALBUTEROL [Concomitant]
     Indication: DYSPNOEA
     Dates: start: 20100823
  14. HYDROCHLOROTHIAZIDE [Concomitant]
     Dosage: 25 MG, UNK
  15. COUMADIN [Concomitant]
     Indication: PULMONARY EMBOLISM
     Dosage: 50 MG, 2/D
     Route: 058
     Dates: start: 20100702
  16. GEMCITABINE HYDROCHLORIDE [Suspect]
     Indication: NON-SMALL CELL LUNG CANCER
     Dosage: 1160 MG, OTHER
     Route: 042
     Dates: start: 20100722, end: 20100813
  17. CARBOPLATIN [Suspect]
     Indication: NON-SMALL CELL LUNG CANCER
     Dosage: 585 MG, OTHER
     Route: 042
     Dates: start: 20100722, end: 20100813
  18. ENOXAPARIN SODIUM [Concomitant]
     Dosage: 80 MG, UNK
     Dates: start: 20100823

REACTIONS (3)
  - ARTERIAL THROMBOSIS [None]
  - LEG AMPUTATION [None]
  - NEOPLASM MALIGNANT [None]
